FAERS Safety Report 12924826 (Version 24)
Quarter: 2020Q1

REPORT INFORMATION
  Report Type: Report from Study
  Country: US (occurrence: US)
  Receive Date: 20161108
  Receipt Date: 20200227
  Transmission Date: 20200409
  Serious: Yes (Hospitalization, Other)
  Sender: FDA-Public Use
  Company Number: US-ACTELION-A-US2016-145081

PATIENT
  Age: 46 Year
  Sex: Female
  Weight: 87.08 kg

DRUGS (9)
  1. VELETRI [Suspect]
     Active Substance: EPOPROSTENOL
     Indication: PULMONARY HYPERTENSION
     Dosage: 38.24 NG/KG, PER MIN
     Route: 042
  2. VELETRI [Suspect]
     Active Substance: EPOPROSTENOL
     Dosage: 26.75 NG/KG, PER MIN
     Route: 042
     Dates: start: 20160229
  3. VELETRI [Suspect]
     Active Substance: EPOPROSTENOL
     Dosage: 43.14 NG/KG, PER MIN
     Route: 042
  4. VELETRI [Suspect]
     Active Substance: EPOPROSTENOL
     Dosage: 42.09 NG/KG, PER MIN
     Route: 042
  5. LETAIRIS [Concomitant]
     Active Substance: AMBRISENTAN
  6. ADCIRCA [Concomitant]
     Active Substance: TADALAFIL
  7. VELETRI [Suspect]
     Active Substance: EPOPROSTENOL
     Dosage: 32.9 NG/KG, PER MIN
     Route: 042
  8. VELETRI [Suspect]
     Active Substance: EPOPROSTENOL
     Dosage: 42.61 NG/KG, PER MIN
     Route: 042
  9. OXYGEN. [Concomitant]
     Active Substance: OXYGEN
     Dosage: 5 L/MIN AT REST AND 6 TO 8 L/MIN WITH ACTIVITIES

REACTIONS (45)
  - Hospitalisation [Unknown]
  - Abdominal pain upper [Not Recovered/Not Resolved]
  - Pneumonia viral [Unknown]
  - Pain in jaw [Recovering/Resolving]
  - Nasopharyngitis [Unknown]
  - Weight decreased [Unknown]
  - Dizziness [Unknown]
  - Road traffic accident [Unknown]
  - Dyspnoea [Unknown]
  - Seizure [Unknown]
  - Device connection issue [Unknown]
  - Feeling abnormal [Recovering/Resolving]
  - Catheter site pain [Recovered/Resolved]
  - Hyperhidrosis [Unknown]
  - Upper respiratory tract infection [Recovering/Resolving]
  - Amnesia [Unknown]
  - Weight increased [Unknown]
  - Chest discomfort [Unknown]
  - Vomiting [Unknown]
  - Abdominal pain [Unknown]
  - Nausea [Unknown]
  - Malaise [Unknown]
  - Haemoptysis [Unknown]
  - Catheter site discharge [Unknown]
  - Hot flush [Unknown]
  - Diarrhoea [Unknown]
  - Influenza [Unknown]
  - Muscle spasms [Unknown]
  - Device issue [Recovering/Resolving]
  - Loss of consciousness [Unknown]
  - Dyspnoea exertional [Recovered/Resolved]
  - Chest pain [Recovering/Resolving]
  - Gastrooesophageal reflux disease [Unknown]
  - Fluid overload [Recovering/Resolving]
  - Muscular weakness [Unknown]
  - Catheter management [Unknown]
  - Syncope [Unknown]
  - Catheter site erythema [Recovered/Resolved]
  - Feeling hot [Unknown]
  - Dehydration [Unknown]
  - Decreased appetite [Unknown]
  - Headache [Unknown]
  - Anxiety [Unknown]
  - Palpitations [Not Recovered/Not Resolved]
  - Infusion site pain [Unknown]

NARRATIVE: CASE EVENT DATE: 20190406
